FAERS Safety Report 14221712 (Version 5)
Quarter: 2022Q1

REPORT INFORMATION
  Report Type: Spontaneous
  Country: US (occurrence: US)
  Receive Date: 20171124
  Receipt Date: 20220201
  Transmission Date: 20220423
  Serious: Yes (Hospitalization)
  Sender: FDA-Public Use
  Company Number: US-PFIZER INC-2017501670

PATIENT
  Age: 75 Year
  Sex: Female
  Weight: 72.562 kg

DRUGS (2)
  1. XALKORI [Suspect]
     Active Substance: CRIZOTINIB
     Indication: Lung cancer metastatic
     Dosage: 250 MG, 2X/DAY
     Route: 048
  2. XALKORI [Suspect]
     Active Substance: CRIZOTINIB
     Dosage: 250 MG, 2X/DAY(ONE AT MORNING AND ONE AT NIGHT)
     Route: 048

REACTIONS (10)
  - Staphylococcal infection [Recovered/Resolved]
  - Floating patella [Recovering/Resolving]
  - Foot fracture [Recovered/Resolved]
  - Sciatica [Unknown]
  - Pain in extremity [Unknown]
  - Arthralgia [Unknown]
  - Pain [Recovering/Resolving]
  - Memory impairment [Unknown]
  - Gait disturbance [Unknown]
  - Weight decreased [Unknown]

NARRATIVE: CASE EVENT DATE: 20160101
